FAERS Safety Report 19937243 (Version 1)
Quarter: 2021Q4

REPORT INFORMATION
  Report Type: Spontaneous
  Country: CN (occurrence: CN)
  Receive Date: 20211010
  Receipt Date: 20211010
  Transmission Date: 20220304
  Serious: Yes (Hospitalization, Other)
  Sender: FDA-Public Use
  Company Number: CN-BAXTER-2021BAX026414

PATIENT
  Age: 51 Year
  Sex: Male
  Weight: 56 kg

DRUGS (12)
  1. CYCLOPHOSPHAMIDE [Suspect]
     Active Substance: CYCLOPHOSPHAMIDE
     Indication: Non-Hodgkin^s lymphoma
     Dosage: 1ST TO 5TH REGIMEN;
     Route: 041
  2. CYCLOPHOSPHAMIDE [Suspect]
     Active Substance: CYCLOPHOSPHAMIDE
     Dosage: SIXTH REGIMEN; CYCLOPHOSPHAMIDE 1.2G + 0.9% NS 100ML
     Route: 041
     Dates: start: 20190831, end: 20190831
  3. SODIUM CHLORIDE [Suspect]
     Active Substance: SODIUM CHLORIDE
     Indication: Medication dilution
     Dosage: SOLVENT FOR CYCLOPHOSPHAMIDE
     Route: 041
     Dates: start: 20190831, end: 20190831
  4. SODIUM CHLORIDE [Suspect]
     Active Substance: SODIUM CHLORIDE
     Dosage: SOLVENT FOR RITUXIMAB
     Route: 041
     Dates: start: 20190826, end: 20190826
  5. SODIUM CHLORIDE [Suspect]
     Active Substance: SODIUM CHLORIDE
     Dosage: SOLVENT FOR ETOPOSIDE
     Route: 041
     Dates: start: 20190827, end: 20190831
  6. DEXTROSE [Suspect]
     Active Substance: DEXTROSE
     Indication: Medication dilution
     Dosage: SOLVENT FOR DOXIRUBICIN LIPOSOME INJECTION
     Route: 041
     Dates: start: 20190827, end: 20190830
  7. DOXORUBICIN HYDROCHLORIDE [Suspect]
     Active Substance: DOXORUBICIN HYDROCHLORIDE
     Indication: Non-Hodgkin^s lymphoma
     Dosage: LIPOSOME INJECTION; DOXORUBICIN LIPOSOME 20MG + 5% GS 250ML;
     Route: 041
     Dates: start: 20190827, end: 20190830
  8. VINCRISTINE SULFATE [Suspect]
     Active Substance: VINCRISTINE SULFATE
     Indication: Non-Hodgkin^s lymphoma
     Dosage: INTRA-PUMP INJECTION;
     Route: 050
     Dates: start: 20190827, end: 20190831
  9. ETOPOSIDE [Suspect]
     Active Substance: ETOPOSIDE
     Indication: Non-Hodgkin^s lymphoma
     Dosage: INTRA-PUMP INJECTION; 1ST TO 5TH REGIMEN;
     Route: 050
  10. ETOPOSIDE [Suspect]
     Active Substance: ETOPOSIDE
     Dosage: INTRA-PUMP INJECTION; ETOPOSIDE 0.12G + 0.9% NS 300ML;
     Route: 050
     Dates: start: 20190827, end: 20190831
  11. MABTHERA [Suspect]
     Active Substance: RITUXIMAB
     Indication: Non-Hodgkin^s lymphoma
     Dosage: RITUXIMAB 700MG + 0.9% NS 600ML;
     Route: 041
     Dates: start: 20190826, end: 20190826
  12. PREDNISONE ACETATE [Suspect]
     Active Substance: PREDNISONE ACETATE
     Indication: Non-Hodgkin^s lymphoma
     Dosage: TABLETS;
     Route: 048
     Dates: start: 20190827, end: 20190901

REACTIONS (3)
  - Myelosuppression [Recovering/Resolving]
  - Myelosuppression [Recovered/Resolved]
  - Pyrexia [Unknown]

NARRATIVE: CASE EVENT DATE: 20190904
